FAERS Safety Report 9742542 (Version 1)
Quarter: 2013Q4

REPORT INFORMATION
  Report Type: Report from Study
  Country: BR (occurrence: BR)
  Receive Date: 20131210
  Receipt Date: 20131210
  Transmission Date: 20140711
  Serious: Yes (Disabling, Other)
  Sender: FDA-Public Use
  Company Number: PHHY2013BR144175

PATIENT
  Sex: Male
  Weight: 78 kg

DRUGS (2)
  1. DIOVAN [Suspect]
     Dosage: UNK UKN, UNK
     Route: 048
  2. AMLODIPINE [Concomitant]
     Indication: BLOOD PRESSURE
     Dosage: UNK UKN, UNK

REACTIONS (2)
  - Hypoacusis [Recovering/Resolving]
  - Deafness unilateral [Not Recovered/Not Resolved]
